FAERS Safety Report 11229290 (Version 3)
Quarter: 2015Q3

REPORT INFORMATION
  Report Type: Spontaneous
  Country: FR (occurrence: FR)
  Receive Date: 20150630
  Receipt Date: 20150805
  Transmission Date: 20151125
  Serious: Yes (Life-Threatening, Hospitalization, Other)
  Sender: FDA-Public Use
  Company Number: FR-PFIZER INC-2015212325

PATIENT
  Age: 65 Year
  Sex: Female

DRUGS (5)
  1. XANAX [Suspect]
     Active Substance: ALPRAZOLAM
     Dosage: 20 DF OF 0.50 MG, SINGLE
     Route: 048
     Dates: start: 20150408, end: 20150409
  2. THERALENE [Concomitant]
     Active Substance: TRIMEPRAZINE
     Dosage: UNK
  3. PAROXETINE [Suspect]
     Active Substance: PAROXETINE\PAROXETINE HYDROCHLORIDE
     Dosage: 40 MG
     Route: 048
     Dates: start: 20150408, end: 20150409
  4. NOCTAMIDE [Concomitant]
     Active Substance: LORMETAZEPAM
     Dosage: 2 MG
  5. KLIPAL CODEINE [Suspect]
     Active Substance: ACETAMINOPHEN\CODEINE PHOSPHATE
     Dosage: 36 DF, SINGLE
     Route: 048
     Dates: start: 20150408, end: 20150409

REACTIONS (5)
  - Hepatitis fulminant [Unknown]
  - Intentional overdose [Recovered/Resolved]
  - Shock [Recovered/Resolved]
  - Coma [Recovered/Resolved]
  - Vomiting [Unknown]

NARRATIVE: CASE EVENT DATE: 2015
